FAERS Safety Report 16122680 (Version 1)
Quarter: 2019Q1

REPORT INFORMATION
  Report Type: Spontaneous
  Country: FR (occurrence: FR)
  Receive Date: 20190327
  Receipt Date: 20190327
  Transmission Date: 20190418
  Serious: Yes (Hospitalization)
  Sender: FDA-Public Use
  Company Number: FR-SA-2019SA075718

PATIENT
  Age: 74 Year
  Sex: Male

DRUGS (3)
  1. LOVENOX [Suspect]
     Active Substance: ENOXAPARIN SODIUM
     Indication: PROPHYLAXIS
     Dosage: 4000 IU, QD
     Route: 058
     Dates: start: 20190227, end: 20190227
  2. NEFOPAM HYDROCHLORIDE [Suspect]
     Active Substance: NEFOPAM HYDROCHLORIDE
     Indication: PRODUCT USED FOR UNKNOWN INDICATION
     Dosage: UNK
     Route: 042
     Dates: start: 201902
  3. LANSOPRAZOLE MYLAN [Suspect]
     Active Substance: LANSOPRAZOLE
     Dosage: 15 MG, QD
     Route: 048
     Dates: start: 20190227, end: 20190227

REACTIONS (3)
  - Hypotension [Recovering/Resolving]
  - Urticaria [Recovering/Resolving]
  - Hypersensitivity [Recovering/Resolving]

NARRATIVE: CASE EVENT DATE: 20190227
